FAERS Safety Report 14365647 (Version 3)
Quarter: 2018Q2

REPORT INFORMATION
  Report Type: Spontaneous
  Country: RU (occurrence: RU)
  Receive Date: 20180109
  Receipt Date: 20180418
  Transmission Date: 20180711
  Serious: Yes (Hospitalization, Disabling, Other)
  Sender: FDA-Public Use
  Company Number: RU-ALEXION PHARMACEUTICALS INC-A201714874

PATIENT
  Age: 0 Day
  Sex: Male
  Weight: .62 kg

DRUGS (1)
  1. SOLIRIS [Suspect]
     Active Substance: ECULIZUMAB
     Indication: PRODUCT USED FOR UNKNOWN INDICATION
     Dosage: UNK
     Route: 064

REACTIONS (5)
  - Bronchopulmonary dysplasia [Not Recovered/Not Resolved]
  - Necrotising enterocolitis neonatal [Unknown]
  - Premature baby [Unknown]
  - Foetal exposure during pregnancy [Unknown]
  - Pneumonia [Unknown]

NARRATIVE: CASE EVENT DATE: 20171026
